FAERS Safety Report 6441476-8 (Version None)
Quarter: 2009Q4

REPORT INFORMATION
  Report Type: 
  Country: None (occurrence: None)
  Receive Date: 20091116
  Receipt Date: 20091110
  Transmission Date: 20100525
  Serious: Yes (Hospitalization)
  Sender: FDA-Public Use
  Company Number: A0816861A

PATIENT
  Age: 46 Year
  Sex: Female

DRUGS (2)
  1. AVANDAMET [Suspect]
     Dosage: 2MG TWICE PER DAY
     Route: 065
     Dates: start: 20050101, end: 20080201
  2. AVANDIA [Suspect]
     Route: 065
     Dates: start: 20050101, end: 20090201

REACTIONS (1)
  - MYOCARDIAL INFARCTION [None]
